FAERS Safety Report 9780855 (Version 2)
Quarter: 2013Q4

REPORT INFORMATION
  Report Type: Report from Study
  Country: CA (occurrence: CA)
  Receive Date: 20131224
  Receipt Date: 20131224
  Transmission Date: 20140711
  Serious: Yes (Death, Other)
  Sender: FDA-Public Use
  Company Number: PHHY2011CA112875

PATIENT
  Age: 64 Year
  Sex: Male

DRUGS (5)
  1. SANDOSTATIN LAR [Suspect]
     Indication: PANCREATIC NEUROENDOCRINE TUMOUR
     Dosage: 30 MG, EVERY 2 WEEKS
     Route: 030
     Dates: start: 20111125
  2. SANDOSTATIN LAR [Suspect]
     Dosage: 30 MG, UNK
     Route: 030
  3. SANDOSTATIN LAR [Suspect]
     Dosage: 30 MG, EVERY 2 WEEKS
     Route: 030
     Dates: end: 20131206
  4. PRAZOSIN [Concomitant]
     Dosage: 1 DF, UNK
  5. PRAZOSIN [Concomitant]
     Dosage: 2 DF, UNK

REACTIONS (5)
  - Death [Fatal]
  - Blood pressure increased [Unknown]
  - Nasopharyngitis [Unknown]
  - Productive cough [Unknown]
  - Heart rate decreased [Unknown]
